FAERS Safety Report 7025368-1 (Version None)
Quarter: 2010Q4

REPORT INFORMATION
  Report Type: 
  Country: None (occurrence: None)
  Receive Date: 20101001
  Receipt Date: 20100921
  Transmission Date: 20110411
  Serious: Yes (Hospitalization)
  Sender: FDA-Public Use
  Company Number: PHHY2010CA62811

PATIENT
  Age: 76 Year
  Sex: Female

DRUGS (1)
  1. ACLASTA [Suspect]
     Dosage: 5 MG/ 100 ML
     Route: 042
     Dates: start: 20100901

REACTIONS (8)
  - AMNESIA [None]
  - ARTHRALGIA [None]
  - CHILLS [None]
  - CYSTITIS [None]
  - FATIGUE [None]
  - MYALGIA [None]
  - NAUSEA [None]
  - VOMITING [None]
